FAERS Safety Report 13038048 (Version 1)
Quarter: 2016Q4

REPORT INFORMATION
  Report Type: Spontaneous
  Country: US (occurrence: US)
  Receive Date: 20161213
  Receipt Date: 20161213
  Transmission Date: 20170207
  Serious: Yes (Disabling, Other)
  Sender: FDA-Public Use
  Company Number: None

PATIENT
  Age: 47 Year
  Sex: Female
  Weight: 69.4 kg

DRUGS (7)
  1. TRANSDERM SCOP [Suspect]
     Active Substance: SCOPOLAMINE
     Indication: MOTION SICKNESS
     Dosage: 12 DAYS SUPPLY 1 EVERY 3-4 DAYS BEHIND EAR PATCH
     Route: 061
     Dates: start: 20160105, end: 20161105
  2. BACLOFEN. [Concomitant]
     Active Substance: BACLOFEN
  3. XOPENEX [Concomitant]
     Active Substance: LEVALBUTEROL HYDROCHLORIDE
  4. AMBIEN [Concomitant]
     Active Substance: ZOLPIDEM TARTRATE
  5. BIOTIN [Concomitant]
     Active Substance: BIOTIN
  6. FIBER [Concomitant]
     Active Substance: PSYLLIUM HUSK
  7. VITAMIN D [Concomitant]
     Active Substance: CHOLECALCIFEROL

REACTIONS (10)
  - Headache [None]
  - Dysarthria [None]
  - Speech disorder [None]
  - Balance disorder [None]
  - Dysstasia [None]
  - Cognitive disorder [None]
  - Disorientation [None]
  - Amnesia [None]
  - Consciousness fluctuating [None]
  - Vomiting [None]

NARRATIVE: CASE EVENT DATE: 20161205
